FAERS Safety Report 15181363 (Version 1)
Quarter: 2018Q3

REPORT INFORMATION
  Report Type: Spontaneous
  Country: US (occurrence: US)
  Receive Date: 20180723
  Receipt Date: 20180723
  Transmission Date: 20181010
  Serious: Yes (Other)
  Sender: FDA-Public Use
  Company Number: US-BAYER-2018-117729

PATIENT
  Age: 78 Year
  Sex: Female

DRUGS (5)
  1. CITRACAL MAXIMUM [Suspect]
     Active Substance: CALCIUM CITRATE\CHOLECALCIFEROL
     Indication: NUTRITIONAL SUPPLEMENTATION
     Dosage: 4 DF, QD 4 TABLETS DAILY DOSE
     Route: 048
  2. CITRACAL MAXIMUM [Suspect]
     Active Substance: CALCIUM CITRATE\CHOLECALCIFEROL
     Indication: BONE DISORDER
     Dosage: UNK
  3. BAYER ASPIRIN [Suspect]
     Active Substance: ASPIRIN
     Dosage: 1 DF, QD
     Route: 048
  4. VITAMIN C [Concomitant]
     Active Substance: ASCORBIC ACID
     Dosage: UNK
  5. VITAMIN D [Concomitant]
     Active Substance: CHOLECALCIFEROL
     Dosage: UNK

REACTIONS (7)
  - Product use in unapproved indication [Unknown]
  - Wrong technique in product usage process [Unknown]
  - Throat irritation [Unknown]
  - Choking [Recovered/Resolved]
  - Product use complaint [Unknown]
  - Nausea [Unknown]
  - Incorrect drug administration duration [Unknown]

NARRATIVE: CASE EVENT DATE: 20180713
